FAERS Safety Report 9621212 (Version 2)
Quarter: 2013Q4

REPORT INFORMATION
  Report Type: Spontaneous
  Country: US (occurrence: US)
  Receive Date: 20131015
  Receipt Date: 20131015
  Transmission Date: 20140711
  Serious: Yes (Hospitalization, Other)
  Sender: FDA-Public Use
  Company Number: US-PURDUE-USA-2013-0104151

PATIENT
  Sex: Female
  Weight: 58.5 kg

DRUGS (2)
  1. BUTRANS [Suspect]
     Indication: MULTIPLE SCLEROSIS
     Dosage: 10 MCG/HR, WEEKLY
     Route: 062
     Dates: start: 20130415
  2. BUTRANS [Suspect]
     Indication: PAIN

REACTIONS (3)
  - Eye irritation [Recovered/Resolved]
  - Multiple sclerosis relapse [Unknown]
  - Urinary tract infection [Unknown]
